FAERS Safety Report 19454642 (Version 1)
Quarter: 2021Q2

REPORT INFORMATION
  Report Type: Spontaneous
  Country: SE (occurrence: NL)
  Receive Date: 20210623
  Receipt Date: 20210623
  Transmission Date: 20210717
  Serious: Yes (Congenital Anomaly, Other)
  Sender: FDA-Public Use
  Company Number: SE-LUNDBECK-DKLU3033358

PATIENT

DRUGS (3)
  1. CLOBAZAM. [Suspect]
     Active Substance: CLOBAZAM
     Indication: PRODUCT USED FOR UNKNOWN INDICATION
     Dosage: 10 MG, QD
     Route: 064
  2. OXCARBAZEPINE. [Suspect]
     Active Substance: OXCARBAZEPINE
     Indication: PRODUCT USED FOR UNKNOWN INDICATION
     Dosage: DURING 1ST AND 2ND TRIMESTER OF PREGNANCY
     Route: 064
  3. LORAZEPAM. [Suspect]
     Active Substance: LORAZEPAM
     Indication: PRODUCT USED FOR UNKNOWN INDICATION
     Dosage: DURING 1ST AND 2ND TRIMESTER OF PREGNANCY
     Route: 064

REACTIONS (2)
  - Anencephaly [Unknown]
  - Foetal exposure during pregnancy [Unknown]
